FAERS Safety Report 9165677 (Version 1)
Quarter: 2013Q1

REPORT INFORMATION
  Report Type: Spontaneous
  Country: US (occurrence: US)
  Receive Date: 20130315
  Receipt Date: 20130315
  Transmission Date: 20140127
  Serious: Yes (Other)
  Sender: FDA-Public Use
  Company Number: US-ASTELLAS-2013US002871

PATIENT
  Sex: Male

DRUGS (10)
  1. VESICARE [Suspect]
     Indication: POLLAKIURIA
     Dosage: UNK
     Route: 065
  2. VESICARE [Suspect]
     Indication: MICTURITION URGENCY
     Dosage: 5 MG, UNKNOWN/D
     Route: 065
  3. VESICARE [Suspect]
     Indication: URGE INCONTINENCE
  4. ALEVE [Concomitant]
     Indication: PRODUCT USED FOR UNKNOWN INDICATION
     Dosage: UNK
     Route: 065
  5. GLUCOSAMINE W/CHONDROITIN SULFATE [Concomitant]
     Indication: PRODUCT USED FOR UNKNOWN INDICATION
     Dosage: UNK
     Route: 065
  6. ASPIRIN [Concomitant]
     Indication: PRODUCT USED FOR UNKNOWN INDICATION
     Dosage: UNK
     Route: 065
  7. VIT D [Concomitant]
     Indication: PRODUCT USED FOR UNKNOWN INDICATION
     Dosage: UNK
     Route: 065
  8. MYRBETRIQ [Concomitant]
     Indication: POLLAKIURIA
     Dosage: UNK
     Route: 065
  9. MYRBETRIQ [Concomitant]
     Indication: MICTURITION URGENCY
  10. MYRBETRIQ [Concomitant]
     Indication: URGE INCONTINENCE

REACTIONS (4)
  - Drug ineffective [Unknown]
  - Dysarthria [Unknown]
  - Confusional state [Unknown]
  - Dizziness [Unknown]
